FAERS Safety Report 7292714-3 (Version None)
Quarter: 2011Q1

REPORT INFORMATION
  Report Type: 
  Country: None (occurrence: None)
  Receive Date: 20110215
  Receipt Date: 20110204
  Transmission Date: 20110831
  Serious: Yes (Hospitalization)
  Sender: FDA-Public Use
  Company Number: IT-NOVOPROD-322958

PATIENT
  Sex: Male

DRUGS (5)
  1. VICTOZA [Suspect]
     Indication: TYPE 2 DIABETES MELLITUS
     Dosage: 1.2 MG, QD
     Route: 058
     Dates: start: 20101029, end: 20101210
  2. METFORMIN HCL [Concomitant]
     Dosage: 2 DF, QD
     Route: 048
     Dates: start: 20101020, end: 20101210
  3. GOPTEN [Concomitant]
     Dosage: 2 MG, QD
     Route: 048
     Dates: start: 20020418, end: 20101210
  4. ASPIRIN [Concomitant]
  5. SIMVASTATIN [Concomitant]
     Dosage: 20 MG, QD
     Route: 048
     Dates: start: 20080605, end: 20101210

REACTIONS (4)
  - PANCREATITIS [None]
  - PYREXIA [None]
  - VIRAL INFECTION [None]
  - MALAISE [None]
